FAERS Safety Report 4701383-5 (Version None)
Quarter: 2005Q2

REPORT INFORMATION
  Report Type: 
  Country: None (occurrence: None)
  Receive Date: 20050627
  Receipt Date: 20050610
  Transmission Date: 20051028
  Serious: Yes (Death, Hospitalization, Other)
  Sender: FDA-Public Use
  Company Number: 215054

PATIENT
  Age: 66 Year
  Sex: Male

DRUGS (1)
  1. EFALIZUMAB               (EFALIZUMAB) [Suspect]
     Indication: PSORIASIS
     Dosage: 1 MG/KG , 1/WEEK, SUBCUTANEOUS
     Route: 058
     Dates: start: 20050419, end: 20050526

REACTIONS (11)
  - ABNORMAL BEHAVIOUR [None]
  - CARDIOVERSION [None]
  - DIALYSIS [None]
  - HALLUCINATION [None]
  - LYMPHADENOPATHY [None]
  - MENINGITIS [None]
  - PNEUMONIA [None]
  - RENAL FAILURE [None]
  - SEPSIS [None]
  - SOMNOLENCE [None]
  - TOOTH ABSCESS [None]
